FAERS Safety Report 6568498-0 (Version None)
Quarter: 2010Q1

REPORT INFORMATION
  Report Type: 
  Country: None (occurrence: None)
  Receive Date: 20100203
  Receipt Date: 20100128
  Transmission Date: 20100710
  Serious: Yes (Death)
  Sender: FDA-Public Use
  Company Number: B0630064A

PATIENT
  Sex: Male

DRUGS (4)
  1. AVOLVE [Suspect]
     Indication: DYSURIA
     Dosage: .5MG PER DAY
     Route: 048
     Dates: start: 20091209, end: 20100104
  2. LEUPLIN [Suspect]
     Indication: DRUG USE FOR UNKNOWN INDICATION
     Route: 058
  3. SILODOSIN [Suspect]
     Indication: DRUG USE FOR UNKNOWN INDICATION
     Route: 048
     Dates: start: 20091205
  4. DECADRON [Suspect]
     Indication: DRUG USE FOR UNKNOWN INDICATION
     Route: 048
     Dates: start: 20091209

REACTIONS (1)
  - HEPATIC FUNCTION ABNORMAL [None]
